FAERS Safety Report 24072688 (Version 1)
Quarter: 2024Q3

REPORT INFORMATION
  Report Type: Spontaneous
  Country: IE (occurrence: IE)
  Receive Date: 20240710
  Receipt Date: 20240710
  Transmission Date: 20241017
  Serious: Yes (Hospitalization)
  Sender: STRIDES
  Company Number: IE-STRIDES ARCOLAB LIMITED-2024SP008055

PATIENT
  Sex: Male

DRUGS (12)
  1. LEVETIRACETAM [Suspect]
     Active Substance: LEVETIRACETAM
     Indication: Sleep related hypermotor epilepsy
     Dosage: UNK
     Route: 065
  2. LACOSAMIDE [Suspect]
     Active Substance: LACOSAMIDE
     Indication: Sleep related hypermotor epilepsy
     Dosage: UNK
     Route: 065
  3. VALPROATE SODIUM [Suspect]
     Active Substance: VALPROATE SODIUM
     Indication: Sleep related hypermotor epilepsy
     Dosage: UNK
     Route: 065
  4. BRIVARACETAM [Suspect]
     Active Substance: BRIVARACETAM
     Indication: Sleep related hypermotor epilepsy
     Dosage: UNK
     Route: 065
  5. PERAMPANEL [Suspect]
     Active Substance: PERAMPANEL
     Indication: Sleep related hypermotor epilepsy
     Dosage: UNK
     Route: 065
  6. OXCARBAZEPINE [Suspect]
     Active Substance: OXCARBAZEPINE
     Indication: Sleep related hypermotor epilepsy
     Dosage: UNK
     Route: 065
  7. CLOBAZAM [Suspect]
     Active Substance: CLOBAZAM
     Indication: Sleep related hypermotor epilepsy
     Dosage: UNK
     Route: 065
  8. ESLICARBAZEPINE [Suspect]
     Active Substance: ESLICARBAZEPINE
     Indication: Sleep related hypermotor epilepsy
     Dosage: UNK
     Route: 065
  9. LAMOTRIGINE [Suspect]
     Active Substance: LAMOTRIGINE
     Indication: Sleep related hypermotor epilepsy
     Dosage: UNK
     Route: 065
  10. CARBAMAZEPINE [Concomitant]
     Active Substance: CARBAMAZEPINE
     Indication: Sleep related hypermotor epilepsy
     Dosage: UNK
     Route: 065
  11. CARBAMAZEPINE [Concomitant]
     Active Substance: CARBAMAZEPINE
     Dosage: 400 MILLIGRAM, EVERY MORNING (IN THE MORNING)
     Route: 065
  12. CARBAMAZEPINE [Concomitant]
     Active Substance: CARBAMAZEPINE
     Dosage: 1000 MILLIGRAM (IN THE EVENING)
     Route: 065

REACTIONS (1)
  - Therapy non-responder [Unknown]
